FAERS Safety Report 12546122 (Version 1)
Quarter: 2016Q3

REPORT INFORMATION
  Report Type: Spontaneous
  Country: US (occurrence: US)
  Receive Date: 20160711
  Receipt Date: 20160711
  Transmission Date: 20161109
  Serious: No
  Sender: FDA-Public Use
  Company Number: US-JNJFOC-20160625953

PATIENT
  Age: 29 Year
  Sex: Male

DRUGS (4)
  1. INVEGA [Suspect]
     Active Substance: PALIPERIDONE
     Indication: SLEEP DISORDER THERAPY
     Route: 048
     Dates: start: 200607, end: 201502
  2. RISPERDAL CONSTA [Suspect]
     Active Substance: RISPERIDONE
     Indication: SCHIZOPHRENIA
     Route: 030
     Dates: start: 199607, end: 201502
  3. RISPERDAL CONSTA [Suspect]
     Active Substance: RISPERIDONE
     Indication: ANXIETY
     Route: 030
     Dates: start: 199607, end: 201502
  4. INVEGA [Suspect]
     Active Substance: PALIPERIDONE
     Indication: ANXIETY
     Route: 048
     Dates: start: 200607, end: 201502

REACTIONS (5)
  - Gynaecomastia [Unknown]
  - Product use issue [Unknown]
  - Off label use [Unknown]
  - Abnormal weight gain [Unknown]
  - Galactorrhoea [Unknown]

NARRATIVE: CASE EVENT DATE: 200607
